FAERS Safety Report 19871696 (Version 1)
Quarter: 2021Q3

REPORT INFORMATION
  Report Type: Spontaneous
  Country: US (occurrence: US)
  Receive Date: 20210922
  Receipt Date: 20210922
  Transmission Date: 20211014
  Serious: Yes (Hospitalization)
  Sender: FDA-Public Use
  Company Number: None

PATIENT
  Age: 31 Year
  Sex: Female

DRUGS (1)
  1. STELARA [Suspect]
     Active Substance: USTEKINUMAB
     Indication: CROHN^S DISEASE
     Dosage: OTHER FREQUENCY:Q6WK;?
     Route: 058
     Dates: start: 20200130

REACTIONS (4)
  - Dehydration [None]
  - Condition aggravated [None]
  - COVID-19 [None]
  - Impaired quality of life [None]

NARRATIVE: CASE EVENT DATE: 20210921
